FAERS Safety Report 8397132-2 (Version None)
Quarter: 2012Q2

REPORT INFORMATION
  Report Type: 
  Country: None (occurrence: None)
  Receive Date: 20120530
  Receipt Date: 20120516
  Transmission Date: 20120825
  Serious: Yes (Hospitalization)
  Sender: FDA-Public Use
  Company Number: US-ROCHE-1070347

PATIENT

DRUGS (2)
  1. NUTROPIN AQ [Suspect]
     Indication: PRODUCT USED FOR UNKNOWN INDICATION
     Route: 058
     Dates: start: 20120430, end: 20120509
  2. HYDROCORTISONE [Concomitant]
     Indication: CUSHING'S SYNDROME

REACTIONS (6)
  - WEIGHT INCREASED [None]
  - LETHARGY [None]
  - OEDEMA PERIPHERAL [None]
  - NASOPHARYNGITIS [None]
  - FATIGUE [None]
  - PYREXIA [None]
